FAERS Safety Report 19105871 (Version 2)
Quarter: 2021Q2

REPORT INFORMATION
  Report Type: Report from Study
  Country: None (occurrence: ES)
  Receive Date: 20210407
  Receipt Date: 20210413
  Transmission Date: 20210717
  Serious: Yes (Death)
  Sender: FDA-Public Use
  Company Number: ES-ABBVIE-21K-144-3850284-00

PATIENT
  Sex: Female

DRUGS (2)
  1. DUODOPA [Suspect]
     Active Substance: CARBIDOPA\LEVODOPA
     Indication: PARKINSON^S DISEASE
     Dosage: 20 MG/ML 5 MG/ML
     Route: 050
     Dates: start: 20160929
  2. DUODOPA [Suspect]
     Active Substance: CARBIDOPA\LEVODOPA

REACTIONS (3)
  - Urinary tract infection [Fatal]
  - Systemic infection [Fatal]
  - General physical health deterioration [Unknown]

NARRATIVE: CASE EVENT DATE: 2021
